FAERS Safety Report 22232636 (Version 1)
Quarter: 2023Q2

REPORT INFORMATION
  Report Type: Spontaneous
  Country: US (occurrence: US)
  Receive Date: 20230420
  Receipt Date: 20230420
  Transmission Date: 20230721
  Serious: Yes (Death, Other)
  Sender: FDA-Public Use
  Company Number: US-BRISTOL-MYERS SQUIBB COMPANY-2023-053520

PATIENT
  Age: 76 Year
  Sex: Female

DRUGS (1)
  1. REVLIMID [Suspect]
     Active Substance: LENALIDOMIDE
     Indication: Pollakiuria
     Dosage: FREQUENCY: TAKE 1 CAPSULE BY MOUTH EVERYDAY ON
     Route: 048
     Dates: start: 20160120

REACTIONS (2)
  - Death [Fatal]
  - Off label use [Unknown]
